FAERS Safety Report 8579258-3 (Version None)
Quarter: 2012Q3

REPORT INFORMATION
  Report Type: 
  Country: None (occurrence: None)
  Receive Date: 20120808
  Receipt Date: 20120731
  Transmission Date: 20120928
  Serious: Yes (Other)
  Sender: FDA-Public Use
  Company Number: US-ROCHE-1095091

PATIENT
  Age: 70 Year
  Sex: Female
  Weight: 63.6 kg

DRUGS (4)
  1. AVASTIN [Suspect]
     Indication: OVARIAN EPITHELIAL CANCER
     Dosage: OVER 30-90 MINS ON DAY 1 LAST DOSE: 18/JUN/2012
     Route: 042
     Dates: start: 20120402
  2. CARBOPLATIN [Suspect]
     Indication: OVARIAN EPITHELIAL CANCER
     Dosage: AUC:6 OVER 30 MINS ON DAY 1 LAST DOSE: 18/JUN/2012
     Route: 042
  3. PACLITAXEL [Suspect]
     Indication: OVARIAN EPITHELIAL CANCER
     Dosage: OVER 1 HR ON DAYS 1,8,15 LAST DOSE: 25/JUN/2012
     Route: 042
  4. VELIPARIB [Suspect]
     Indication: OVARIAN EPITHELIAL CANCER
     Dosage: ON DAYS 2-5 LAST DOSE: 22/JUN/2012
     Route: 048

REACTIONS (1)
  - PALMAR-PLANTAR ERYTHRODYSAESTHESIA SYNDROME [None]
